FAERS Safety Report 5755854-3 (Version None)
Quarter: 2008Q2

REPORT INFORMATION
  Report Type: 
  Country: None (occurrence: None)
  Receive Date: 20080528
  Receipt Date: 20080513
  Transmission Date: 20081010
  Serious: Yes (Death)
  Sender: FDA-Public Use
  Company Number: 2008S1008202

PATIENT
  Age: 14 Month
  Sex: Male

DRUGS (1)
  1. FENTANYL TRANSDERMAL SYSTEM [Suspect]
     Dosage: 150 UG; EVERY HOUR; TRANSDERMAL
     Route: 062
     Dates: start: 20080428, end: 20080428

REACTIONS (2)
  - INTENTIONAL DRUG MISUSE [None]
  - OVERDOSE [None]
